FAERS Safety Report 9874802 (Version 1)
Quarter: 2014Q1

REPORT INFORMATION
  Report Type: Spontaneous
  Country: US (occurrence: None)
  Receive Date: 20140205
  Receipt Date: 20140205
  Transmission Date: 20141002
  Serious: Yes (Other)
  Sender: FDA-Public Use
  Company Number: None

PATIENT
  Age: 39 Year
  Sex: Female
  Weight: 67.13 kg

DRUGS (2)
  1. PHENERGAN [Suspect]
     Indication: NAUSEA
     Dates: start: 20130701, end: 20130805
  2. PHENERGAN [Suspect]
     Indication: VOMITING
     Dates: start: 20130701, end: 20130805

REACTIONS (13)
  - Syncope [None]
  - Irritability [None]
  - Mood altered [None]
  - Heart rate irregular [None]
  - Disturbance in attention [None]
  - Vision blurred [None]
  - Confusional state [None]
  - Hypotension [None]
  - Anxiety [None]
  - Insomnia [None]
  - Job dissatisfaction [None]
  - Poor quality sleep [None]
  - Feeling abnormal [None]
